FAERS Safety Report 21582841 (Version 3)
Quarter: 2023Q1

REPORT INFORMATION
  Report Type: Report from Study
  Country: BR (occurrence: BR)
  Receive Date: 20221111
  Receipt Date: 20230127
  Transmission Date: 20230417
  Serious: Yes (Disabling, Other)
  Sender: FDA-Public Use
  Company Number: BR-ABBVIE-4193836

PATIENT
  Age: 58 Year
  Sex: Female
  Weight: 92 kg

DRUGS (1)
  1. RINVOQ [Suspect]
     Active Substance: UPADACITINIB
     Indication: Rheumatoid arthritis
     Dosage: 15 MILLIGRAM
     Route: 048
     Dates: start: 20210406

REACTIONS (9)
  - Gait inability [Unknown]
  - Bedridden [Unknown]
  - Loss of personal independence in daily activities [Unknown]
  - Finger deformity [Unknown]
  - Rheumatoid arthritis [Unknown]
  - Back pain [Unknown]
  - Spinal pain [Unknown]
  - Pain [Unknown]
  - Mobility decreased [Unknown]

NARRATIVE: CASE EVENT DATE: 20230123
